FAERS Safety Report 24412949 (Version 1)
Quarter: 2024Q4

REPORT INFORMATION
  Report Type: Spontaneous
  Country: US (occurrence: None)
  Receive Date: 20241008
  Receipt Date: 20241008
  Transmission Date: 20250115
  Serious: Yes (Life-Threatening, Hospitalization)
  Sender: Public
  Company Number: None

PATIENT
  Age: 57 Year
  Sex: Male
  Weight: 123.2 kg

DRUGS (8)
  1. CHLORPROMAZINE [Suspect]
     Active Substance: CHLORPROMAZINE
     Indication: Agitation
     Dosage: FREQUENCY : AS NEEDED;?
     Route: 048
     Dates: start: 20240921, end: 20240922
  2. BENZTROPINE [Concomitant]
     Active Substance: BENZTROPINE
  3. ENOXAPARIN [Concomitant]
     Active Substance: ENOXAPARIN
  4. OLANZAPINE [Concomitant]
     Active Substance: OLANZAPINE
  5. INSULIN GLARGINE [Concomitant]
     Active Substance: INSULIN GLARGINE
  6. INSULIN LISPRO [Concomitant]
     Active Substance: INSULIN LISPRO
  7. PREGABALIN [Concomitant]
     Active Substance: PREGABALIN
  8. LORAZEPAM [Concomitant]
     Active Substance: LORAZEPAM

REACTIONS (4)
  - Drug-induced liver injury [None]
  - Pyrexia [None]
  - Tremor [None]
  - Documented hypersensitivity to administered product [None]

NARRATIVE: CASE EVENT DATE: 20240923
